FAERS Safety Report 5107575-8 (Version None)
Quarter: 2006Q3

REPORT INFORMATION
  Report Type: 
  Country: None (occurrence: None)
  Receive Date: 20060913
  Receipt Date: 20060913
  Transmission Date: 20061208
  Serious: Yes (Hospitalization)
  Sender: FDA-Public Use
  Company Number: None

PATIENT
  Sex: Male

DRUGS (9)
  1. FONDAPARINUX  2.5 MG [Suspect]
     Indication: THROMBOSIS PROPHYLAXIS
     Dosage: 2.5 MG DAILY SQ
     Route: 058
     Dates: start: 20060110, end: 20060113
  2. ALBUTEROL [Concomitant]
  3. DIPHENHYDRAMINE HCL [Concomitant]
  4. DOCUSATE [Concomitant]
  5. FLUNISOLIDE ORAL [Concomitant]
  6. GABAPENTIN [Concomitant]
  7. IPRATROPIUM BROMIDE [Concomitant]
  8. MONTELUKAST [Concomitant]
  9. OXYCODONE AND ACETAMINOPHEN [Concomitant]

REACTIONS (2)
  - HAEMATOCRIT DECREASED [None]
  - HAEMOGLOBIN DECREASED [None]
